FAERS Safety Report 6065663-6 (Version None)
Quarter: 2009Q1

REPORT INFORMATION
  Report Type: 
  Country: None (occurrence: None)
  Receive Date: 20090130
  Receipt Date: 20090116
  Transmission Date: 20090719
  Serious: Yes (Other)
  Sender: FDA-Public Use
  Company Number: DSA_33121_2009

PATIENT
  Age: 65 Year
  Sex: Male

DRUGS (4)
  1. CARDIZEM CD [Suspect]
     Indication: HYPERTENSION
     Dosage: 120 MG QD ORAL
     Route: 048
     Dates: start: 19990101
  2. CARDIZEM CD [Suspect]
     Indication: TACHYCARDIA
     Dosage: 120 MG QD ORAL
     Route: 048
     Dates: start: 19990101
  3. DORZOLAMIDE [Concomitant]
  4. AAS [Concomitant]

REACTIONS (1)
  - BLOOD PRESSURE INCREASED [None]
